FAERS Safety Report 7363634-0 (Version None)
Quarter: 2011Q1

REPORT INFORMATION
  Report Type: 
  Country: None (occurrence: None)
  Receive Date: 20110321
  Receipt Date: 20110316
  Transmission Date: 20110831
  Serious: Yes (Other)
  Sender: FDA-Public Use
  Company Number: US-PFIZER INC-2011058273

PATIENT
  Sex: Male
  Weight: 71.655 kg

DRUGS (1)
  1. XANAX [Suspect]
     Indication: ANXIETY
     Dosage: 0.25MG IN THE MORNING AND 0.5MG IN THE NIGHT
     Route: 048
     Dates: start: 20020101

REACTIONS (4)
  - ANXIETY [None]
  - DYSPNOEA [None]
  - PARANOIA [None]
  - FEAR [None]
